FAERS Safety Report 9167005 (Version 1)
Quarter: 2013Q1

REPORT INFORMATION
  Report Type: Spontaneous
  Country: GB (occurrence: GB)
  Receive Date: 20130317
  Receipt Date: 20130317
  Transmission Date: 20140127
  Serious: Yes (Other)
  Sender: FDA-Public Use
  Company Number: GB-TEVA-390966ISR

PATIENT
  Age: 57 Year
  Sex: Male

DRUGS (13)
  1. ERYTHROMYCIN [Suspect]
     Dates: start: 20130222
  2. ASPIRIN [Concomitant]
     Dates: start: 20121128, end: 20121226
  3. ATENOLOL [Concomitant]
     Dates: start: 20121128, end: 20130205
  4. BENDROFLUMETHIAZIDE [Concomitant]
     Dates: start: 20121128, end: 20130205
  5. METFORMIN [Concomitant]
     Dates: start: 20121128, end: 20130205
  6. OMEPRAZOLE [Concomitant]
     Dates: start: 20121128, end: 20121205
  7. OMEPRAZOLE [Concomitant]
     Dates: start: 20130108, end: 20130205
  8. RAMIPRIL [Concomitant]
     Dates: start: 20121128, end: 20121226
  9. SALBUTAMOL [Concomitant]
     Dates: start: 20121128, end: 20121226
  10. SERETIDE [Concomitant]
     Dates: start: 20121128, end: 20121228
  11. SIMVASTATIN [Concomitant]
     Dates: start: 20121128, end: 20121226
  12. TIOTROPIUM [Concomitant]
     Dates: start: 20121128, end: 20121228
  13. TRIMETHOPRIM [Concomitant]
     Dates: start: 20130121, end: 20130204

REACTIONS (2)
  - Decreased immune responsiveness [Recovered/Resolved]
  - Fungal infection [Recovered/Resolved]
